FAERS Safety Report 9695784 (Version 1)
Quarter: 2013Q4

REPORT INFORMATION
  Report Type: Spontaneous
  Country: US (occurrence: None)
  Receive Date: 20131118
  Receipt Date: 20131118
  Transmission Date: 20140711
  Serious: Yes (Life-Threatening, Hospitalization)
  Sender: FDA-Public Use
  Company Number: None

PATIENT
  Age: 66 Year
  Sex: Male
  Weight: 245 kg

DRUGS (4)
  1. HEPARIN [Suspect]
     Indication: CONVULSION
     Dates: start: 20130618, end: 20130728
  2. HEPARIN [Suspect]
     Indication: THROMBOSIS PROPHYLAXIS
     Dates: start: 20130618, end: 20130728
  3. LEVETIRACETAM [Suspect]
     Indication: CONVULSION
     Route: 042
     Dates: start: 20130720, end: 20130729
  4. LEVETIRACETAM [Suspect]
     Indication: PROPHYLAXIS
     Route: 042
     Dates: start: 20130720, end: 20130729

REACTIONS (1)
  - Thrombocytopenia [None]
